FAERS Safety Report 9476834 (Version 1)
Quarter: 2013Q3

REPORT INFORMATION
  Report Type: Spontaneous
  Country: US (occurrence: US)
  Receive Date: 20130826
  Receipt Date: 20130826
  Transmission Date: 20140515
  Serious: No
  Sender: FDA-Public Use
  Company Number: US-TARO-2012P1060948

PATIENT
  Age: 65 Year
  Sex: Female
  Weight: 72.58 kg

DRUGS (1)
  1. CLOBETASOL PROPIONATE CREAM [Suspect]
     Indication: DERMATITIS CONTACT
     Route: 061
     Dates: start: 20121009, end: 20121010

REACTIONS (2)
  - Skin burning sensation [Recovered/Resolved]
  - Drug ineffective [Not Recovered/Not Resolved]
